FAERS Safety Report 8117269-2 (Version None)
Quarter: 2012Q1

REPORT INFORMATION
  Report Type: 
  Country: None (occurrence: None)
  Receive Date: 20120206
  Receipt Date: 20120203
  Transmission Date: 20120608
  Serious: No
  Sender: FDA-Public Use
  Company Number: US-MERCK-1201USA01076

PATIENT
  Sex: Male

DRUGS (2)
  1. NORVIR [Suspect]
     Route: 065
  2. ISENTRESS [Suspect]
     Route: 048

REACTIONS (1)
  - INFLUENZA [None]
